FAERS Safety Report 7293492-4 (Version None)
Quarter: 2011Q1

REPORT INFORMATION
  Report Type: 
  Country: None (occurrence: None)
  Receive Date: 20110215
  Receipt Date: 20110211
  Transmission Date: 20110831
  Serious: Yes (Other)
  Sender: FDA-Public Use
  Company Number: CH-PFIZER INC-2011030857

PATIENT
  Age: 80 Year
  Sex: Female

DRUGS (7)
  1. METFORMIN [Concomitant]
     Dosage: 850 MG, 2X/DAY
  2. ASPIRIN [Concomitant]
     Dosage: UNK
  3. LYRICA [Suspect]
     Dosage: 75 MG, SINGLE
     Dates: start: 20110126, end: 20110126
  4. STILNOX [Concomitant]
     Dosage: UNK
  5. SORTIS [Concomitant]
     Dosage: 10 MG, UNK
  6. INDAPAMIDE [Concomitant]
     Dosage: UNK
  7. APROVEL [Concomitant]
     Dosage: 300 MG, UNK

REACTIONS (2)
  - FALL [None]
  - MOVEMENT DISORDER [None]
